FAERS Safety Report 9377051 (Version 1)
Quarter: 2013Q2

REPORT INFORMATION
  Report Type: Spontaneous
  Country: US (occurrence: None)
  Receive Date: 20130628
  Receipt Date: 20130628
  Transmission Date: 20140414
  Serious: Yes (Disabling, Other)
  Sender: FDA-Public Use
  Company Number: None

PATIENT
  Age: 61 Year
  Sex: Female
  Weight: 82.56 kg

DRUGS (21)
  1. CRESTOR [Suspect]
     Indication: BLOOD CHOLESTEROL INCREASED
     Dosage: 1/2 TABLET
     Route: 048
     Dates: start: 20120101, end: 20130610
  2. ACTONEL [Concomitant]
  3. ATENOLOL [Concomitant]
  4. LISINOPRIL [Concomitant]
  5. NEXIUM [Concomitant]
  6. PAXIL [Concomitant]
  7. SYNTHROID [Concomitant]
  8. VESICARE [Concomitant]
  9. BIO-TRUST-PRO-X10 [Concomitant]
  10. MACAFEM [Concomitant]
  11. SEA KELP [Concomitant]
  12. ALLEGRA ALLERGY [Concomitant]
  13. LOW DOSE ASPIRIN [Concomitant]
  14. CALCIUM [Concomitant]
  15. CO-Q10 [Concomitant]
  16. FISH OIL [Concomitant]
  17. MULTIVITAMIN [Concomitant]
  18. VIT C [Concomitant]
  19. VIIT D3 [Concomitant]
  20. VIT E [Concomitant]
  21. SUBLINGUAL B-12 [Concomitant]

REACTIONS (6)
  - Bone pain [None]
  - Myalgia [None]
  - Gait disturbance [None]
  - Gastric disorder [None]
  - Abdominal pain upper [None]
  - Muscle disorder [None]
